FAERS Safety Report 14374172 (Version 1)
Quarter: 2018Q1

REPORT INFORMATION
  Report Type: Spontaneous
  Country: ES (occurrence: ES)
  Receive Date: 20180111
  Receipt Date: 20180111
  Transmission Date: 20180509
  Serious: Yes (Other)
  Sender: FDA-Public Use
  Company Number: ES-009507513-1801ESP001239

PATIENT

DRUGS (1)
  1. IVERMECTIN. [Suspect]
     Active Substance: IVERMECTIN
     Indication: ONCHOCERCIASIS
     Route: 048

REACTIONS (4)
  - Encephalitis [Unknown]
  - Oedema [Unknown]
  - Pyrexia [Unknown]
  - Pruritus [Unknown]
